FAERS Safety Report 13984242 (Version 12)
Quarter: 2022Q2

REPORT INFORMATION
  Report Type: Spontaneous
  Country: GB (occurrence: GB)
  Receive Date: 20170918
  Receipt Date: 20220525
  Transmission Date: 20220721
  Serious: Yes (Hospitalization, Other)
  Sender: FDA-Public Use
  Company Number: GB-PFIZER INC-2017404056

PATIENT
  Age: 83 Year
  Sex: Female
  Weight: 49.2 kg

DRUGS (26)
  1. RAMIPRIL [Suspect]
     Active Substance: RAMIPRIL
     Indication: Cardiac failure
     Dosage: 1.25 MG,QD
     Route: 048
     Dates: start: 20170418, end: 20170704
  2. SPIRONOLACTONE [Suspect]
     Active Substance: SPIRONOLACTONE
     Indication: Cardiac failure
     Dosage: 25 MG,QD
     Route: 048
     Dates: start: 20161201, end: 20170704
  3. SPIRONOLACTONE [Suspect]
     Active Substance: SPIRONOLACTONE
     Dosage: 25 MG, QD
     Route: 048
     Dates: start: 20170806, end: 20170928
  4. DIOVAN [Suspect]
     Active Substance: VALSARTAN
     Indication: Cardiac failure
     Dosage: UNK UNK,UNK
     Route: 048
     Dates: start: 20151116
  5. SACUBITRIL\VALSARTAN [Suspect]
     Active Substance: SACUBITRIL\VALSARTAN
     Indication: Cardiac failure
     Dosage: UNK
     Route: 048
     Dates: start: 20151116
  6. SACUBITRIL [Suspect]
     Active Substance: SACUBITRIL
     Indication: Cardiac failure
     Dosage: UNK
     Route: 048
     Dates: start: 20151106
  7. SACUBITRIL [Suspect]
     Active Substance: SACUBITRIL
     Dosage: 25 MG, QD
     Route: 048
     Dates: start: 20170806, end: 20170928
  8. CALCIUM CARBONATE\CHOLECALCIFEROL [Concomitant]
     Active Substance: CALCIUM CARBONATE\CHOLECALCIFEROL
     Indication: Product used for unknown indication
     Dosage: UNK
     Route: 065
  9. ALENDRONIC ACID [Concomitant]
     Active Substance: ALENDRONIC ACID
     Indication: Product used for unknown indication
     Dosage: 70 MG, QW
  10. ATORVASTATIN CALCIUM [Concomitant]
     Active Substance: ATORVASTATIN CALCIUM
     Indication: Product used for unknown indication
     Dosage: 40 MG, 1X/DAY (40 MG, QD)
     Dates: start: 20110301
  11. BUMETANIDE [Concomitant]
     Active Substance: BUMETANIDE
     Indication: Product used for unknown indication
     Dosage: 2 MG (ADDITIONAL INFO: 2 MG FROM 29-DEC-2014 TO 06-MAR-2017 TAKEN FOR HEART FAILURE)
     Dates: start: 20141229, end: 20170306
  12. BUMETANIDE [Concomitant]
     Active Substance: BUMETANIDE
     Indication: Cardiac failure
     Dosage: 3 AND 6 MG, BID
     Dates: start: 20170315, end: 20170413
  13. CANDESARTAN [Concomitant]
     Active Substance: CANDESARTAN
     Indication: Product used for unknown indication
     Dosage: 8 MG, 1X/DAY
     Dates: start: 20160805, end: 20160830
  14. CANDESARTAN [Concomitant]
     Active Substance: CANDESARTAN
     Dosage: UNK
     Dates: start: 20161001, end: 20161104
  15. CANDESARTAN [Concomitant]
     Active Substance: CANDESARTAN
     Dosage: UNK
     Dates: start: 20161116
  16. CLOPIDOGREL [Concomitant]
     Active Substance: CLOPIDOGREL BISULFATE
     Indication: Product used for unknown indication
     Dosage: 75 MG QD
  17. CLOPIDOGREL [Concomitant]
     Active Substance: CLOPIDOGREL BISULFATE
     Dosage: (ADDITIONAL INFO: ADDITIONAL DOSE TAKEN)
  18. FUROSEMIDE [Concomitant]
     Active Substance: FUROSEMIDE
     Indication: Product used for unknown indication
     Dosage: ADDITIONAL DOSE TAKEN ON 01-SEP-2016 (40 MG) ALSO FROM 30- SEP-2016 TO 19-DEC-2016 (120 MG
     Dates: start: 20160808, end: 20160830
  19. FUROSEMIDE [Concomitant]
     Active Substance: FUROSEMIDE
     Dosage: 120 MG
     Dates: start: 20160930, end: 20161219
  20. FUROSEMIDE [Concomitant]
     Active Substance: FUROSEMIDE
     Dosage: 40 MG
     Dates: start: 20160901
  21. FUROSEMIDE [Concomitant]
     Active Substance: FUROSEMIDE
     Dosage: 80 MG, 1X/DAY
     Route: 048
     Dates: start: 20160808, end: 20160830
  22. NITROGLYCERIN [Concomitant]
     Active Substance: NITROGLYCERIN
     Indication: Product used for unknown indication
     Dosage: 400 UG, AS NEEDED
     Route: 060
  23. LANSOPRAZOLE [Concomitant]
     Active Substance: LANSOPRAZOLE
     Indication: Product used for unknown indication
     Dosage: 30 MG, 1X/DAY
     Route: 065
  24. NICORANDIL [Concomitant]
     Active Substance: NICORANDIL
     Indication: Product used for unknown indication
     Dosage: 20 MG QD
     Route: 065
     Dates: start: 201403
  25. ACETAMINOPHEN [Concomitant]
     Active Substance: ACETAMINOPHEN
     Indication: Product used for unknown indication
     Dosage: 1000 UG, AS NEEDED
     Route: 048
  26. SENNA LEAF [Concomitant]
     Active Substance: SENNA LEAF
     Indication: Product used for unknown indication
     Dosage: 30 MG QD
     Route: 065

REACTIONS (9)
  - Brain stem stroke [Recovered/Resolved]
  - Fall [Recovered/Resolved]
  - Fall [Recovered/Resolved]
  - Delirium [Not Recovered/Not Resolved]
  - Lower respiratory tract infection [Unknown]
  - Syncope [Unknown]
  - Anaemia [Recovering/Resolving]
  - Renal impairment [Recovering/Resolving]
  - Cardiac failure [Recovered/Resolved]

NARRATIVE: CASE EVENT DATE: 20160831
